FAERS Safety Report 6102103-2 (Version None)
Quarter: 2009Q1

REPORT INFORMATION
  Report Type: 
  Country: None (occurrence: None)
  Receive Date: 20090304
  Receipt Date: 20090220
  Transmission Date: 20090719
  Serious: Yes (Hospitalization)
  Sender: FDA-Public Use
  Company Number: DE-PFIZER INC-2009172397

PATIENT

DRUGS (2)
  1. MARAVIROC [Suspect]
     Indication: HIV INFECTION
     Dosage: 150 MG, 2X/DAY
     Route: 048
     Dates: start: 20060105
  2. MARAVIROC [Suspect]
     Dosage: 300 MG, 2X/DAY
     Route: 048
     Dates: start: 20051123, end: 20060104

REACTIONS (1)
  - VASCULAR OCCLUSION [None]
